FAERS Safety Report 14302550 (Version 1)
Quarter: 2017Q4

REPORT INFORMATION
  Report Type: Spontaneous
  Country: IN (occurrence: IN)
  Receive Date: 20171219
  Receipt Date: 20171219
  Transmission Date: 20180321
  Serious: Yes (Other)
  Sender: FDA-Public Use
  Company Number: None

PATIENT
  Age: 58 Year
  Sex: Male
  Weight: 70 kg

DRUGS (1)
  1. NISE MR (NIMESULIDE\TIZANIDINE) [Suspect]
     Active Substance: NIMESULIDE\TIZANIDINE
     Indication: ORAL PAIN

REACTIONS (2)
  - Insomnia [None]
  - Rash [None]

NARRATIVE: CASE EVENT DATE: 20170821
